FAERS Safety Report 7793984-5 (Version None)
Quarter: 2011Q4

REPORT INFORMATION
  Report Type: 
  Country: None (occurrence: None)
  Receive Date: 20111004
  Receipt Date: 20110927
  Transmission Date: 20120403
  Serious: No
  Sender: FDA-Public Use
  Company Number: US-BIOGENIDEC-2011BI037094

PATIENT
  Sex: Female

DRUGS (2)
  1. TYSABRI [Suspect]
     Indication: MULTIPLE SCLEROSIS
     Route: 042
     Dates: start: 20091102, end: 20100702
  2. TYSABRI [Suspect]
     Route: 042
     Dates: start: 20100902, end: 20110804

REACTIONS (2)
  - MEMORY IMPAIRMENT [None]
  - FATIGUE [None]
